FAERS Safety Report 23947314 (Version 1)
Quarter: 2024Q2

REPORT INFORMATION
  Report Type: Spontaneous
  Country: FR (occurrence: FR)
  Receive Date: 20240606
  Receipt Date: 20240606
  Transmission Date: 20240716
  Serious: Yes (Hospitalization, Other)
  Sender: FDA-Public Use
  Company Number: None

PATIENT
  Sex: Female
  Weight: 2 kg

DRUGS (3)
  1. LEVETIRACETAM [Suspect]
     Active Substance: LEVETIRACETAM
     Indication: Frontal lobe epilepsy
     Dosage: 500 MG, 1X/DAY
     Route: 064
     Dates: start: 20230407, end: 20230801
  2. LAMOTRIGINE [Suspect]
     Active Substance: LAMOTRIGINE
     Indication: Frontal lobe epilepsy
     Dosage: INCREASED TO 325MG DURING PREGNANCY
     Route: 064
     Dates: start: 20221211, end: 20230801
  3. CLOBAZAM [Suspect]
     Active Substance: CLOBAZAM
     Indication: Frontal lobe epilepsy
     Dosage: INCREASED TO 15MG DURING PREGNANCY
     Route: 064
     Dates: start: 20221211, end: 20230801

REACTIONS (2)
  - Maternal exposure during pregnancy [Unknown]
  - Premature baby [Unknown]

NARRATIVE: CASE EVENT DATE: 20221211
